FAERS Safety Report 5334485-3 (Version None)
Quarter: 2007Q1

REPORT INFORMATION
  Report Type: 
  Country: None (occurrence: None)
  Receive Date: 20070306
  Receipt Date: 20051220
  Transmission Date: 20070707
  Serious: Yes (Hospitalization)
  Sender: FDA-Public Use
  Company Number: A03200504381

PATIENT
  Age: 74 Year
  Sex: Male
  Weight: 112.47 kg

DRUGS (16)
  1. PLAVIX [Suspect]
     Indication: ANGINA PECTORIS
     Dosage: 75 MG QD - ORAL
     Route: 048
     Dates: start: 20050401
  2. PLAVIX [Suspect]
     Indication: ANGIOPLASTY
     Dosage: 75 MG QD - ORAL
     Route: 048
     Dates: start: 20050401
  3. PLAVIX [Suspect]
     Indication: STENT PLACEMENT
     Dosage: 75 MG QD - ORAL
     Route: 048
     Dates: start: 20050401
  4. COUMADIN [Suspect]
     Indication: CARDIAC FIBRILLATION
     Dosage: 5 MG AND 7.5 MG ON ALTERNATING DAYS - ORAL
     Route: 048
     Dates: start: 20000101
  5. COUMADIN [Suspect]
     Indication: DEVICE OCCLUSION
     Dosage: 5 MG AND 7.5 MG ON ALTERNATING DAYS - ORAL
     Route: 048
     Dates: start: 20000101
  6. ASPIRIN [Suspect]
     Indication: MYOCARDIAL INFARCTION
     Dosage: 81 MG QD - ORAL
     Route: 048
     Dates: start: 20050401
  7. ASPIRIN [Suspect]
     Indication: STENT PLACEMENT
     Dosage: 81 MG QD - ORAL
     Route: 048
     Dates: start: 20050401
  8. ASPIRIN [Suspect]
     Indication: TRANSIENT ISCHAEMIC ATTACK
     Dosage: 81 MG QD - ORAL
     Route: 048
     Dates: start: 20050401
  9. SOTALOL HYDROCHLORIDE [Concomitant]
  10. CLONAZEPAM [Concomitant]
  11. PRIMIDONE [Concomitant]
  12. ATORVASTATIN [Concomitant]
  13. RAMIPRIL [Concomitant]
  14. FUROSEMIDE [Concomitant]
  15. POTASSIUM CHLORIDE [Concomitant]
  16. LORTAB [Concomitant]

REACTIONS (3)
  - CHEST PAIN [None]
  - CONTUSION [None]
  - GINGIVAL BLEEDING [None]
